FAERS Safety Report 7581494 (Version 4)
Quarter: 2020Q3

REPORT INFORMATION
  Report Type: Report from Study
  Country: US (occurrence: US)
  Receive Date: 20100912
  Receipt Date: 20120106
  Transmission Date: 20201105
  Serious: Yes (Other)
  Sender: FDA-Public Use
  Company Number: US-JNJFOC-20100901173

PATIENT
  Age: 49 Year
  Sex: Female
  Weight: 104.78 kg

DRUGS (14)
  1. USTEKINUMAB [Suspect]
     Active Substance: USTEKINUMAB
     Indication: PSORIASIS
     Route: 058
     Dates: start: 20061031, end: 20100608
  2. DIPHENHYDRAMINE. [Concomitant]
     Active Substance: DIPHENHYDRAMINE
     Dates: start: 20070520
  3. DOXEPIN [Concomitant]
     Active Substance: DOXEPIN
     Dates: start: 20070615
  4. GABAPENTIN. [Concomitant]
     Active Substance: GABAPENTIN
     Dates: start: 200501
  5. HYDROCORTISONE. [Concomitant]
     Active Substance: HYDROCORTISONE
     Dates: start: 20070123
  6. BACLOFEN. [Concomitant]
     Active Substance: BACLOFEN
     Dates: start: 20070730
  7. USTEKINUMAB [Suspect]
     Active Substance: USTEKINUMAB
     Route: 058
  8. PAXIL [Concomitant]
     Active Substance: PAROXETINE HYDROCHLORIDE
     Dates: start: 200002
  9. FOLIC ACID. [Concomitant]
     Active Substance: FOLIC ACID
     Dates: start: 200501
  10. VICODIN [Concomitant]
     Active Substance: ACETAMINOPHEN\HYDROCODONE BITARTRATE
     Indication: PSORIATIC ARTHROPATHY
     Dates: start: 200508
  11. MORPHINE SULFATE. [Concomitant]
     Active Substance: MORPHINE SULFATE
     Indication: PSORIATIC ARTHROPATHY
     Dates: start: 20060522
  12. HYDROXYZINE [Concomitant]
     Active Substance: HYDROXYZINE HYDROCHLORIDE
     Dates: start: 20070123
  13. PLACEBO [Suspect]
     Active Substance: UNSPECIFIED INGREDIENT
     Indication: PSORIASIS
     Route: 058
     Dates: start: 20060808
  14. IBUPROFEN. [Concomitant]
     Active Substance: IBUPROFEN
     Dates: start: 200508

REACTIONS (1)
  - Cervical dysplasia [Not Recovered/Not Resolved]

NARRATIVE: CASE EVENT DATE: 20100722
